FAERS Safety Report 4715331-5 (Version None)
Quarter: 2005Q3

REPORT INFORMATION
  Report Type: 
  Country: None (occurrence: None)
  Receive Date: 20050715
  Receipt Date: 20050706
  Transmission Date: 20060218
  Serious: Yes (Hospitalization, Other)
  Sender: FDA-Public Use
  Company Number: US-MERCK-0507USA01054

PATIENT
  Age: 56 Year
  Sex: Male
  Weight: 175 kg

DRUGS (19)
  1. COREG [Concomitant]
     Indication: HYPERTENSION
     Route: 065
     Dates: start: 20040204
  2. IMDUR [Concomitant]
     Indication: ANGINA PECTORIS
     Route: 065
     Dates: start: 19990101
  3. VIOXX [Suspect]
     Indication: OSTEOARTHRITIS
     Route: 048
     Dates: start: 20010101, end: 20050101
  4. VIOXX [Suspect]
     Route: 048
     Dates: start: 20010101, end: 20050101
  5. VIOXX [Suspect]
     Route: 048
     Dates: start: 20010101, end: 20050101
  6. VIOXX [Suspect]
     Route: 048
     Dates: start: 20010101, end: 20050101
  7. VIOXX [Suspect]
     Route: 048
     Dates: start: 20010101, end: 20050101
  8. VIOXX [Suspect]
     Route: 048
     Dates: start: 20010101, end: 20050101
  9. VIOXX [Suspect]
     Indication: ARTHRITIS
     Route: 048
     Dates: start: 20010101, end: 20050101
  10. VIOXX [Suspect]
     Route: 048
     Dates: start: 20010101, end: 20050101
  11. VIOXX [Suspect]
     Route: 048
     Dates: start: 20010101, end: 20050101
  12. VIOXX [Suspect]
     Route: 048
     Dates: start: 20010101, end: 20050101
  13. VIOXX [Suspect]
     Route: 048
     Dates: start: 20010101, end: 20050101
  14. VIOXX [Suspect]
     Route: 048
     Dates: start: 20010101, end: 20050101
  15. IBUPROFEN [Concomitant]
     Indication: PAIN
     Route: 065
     Dates: start: 20010101
  16. DARVOCET-N 100 [Concomitant]
     Indication: PAIN
     Route: 065
     Dates: start: 20010209, end: 20040101
  17. MOTRIN [Concomitant]
     Route: 065
     Dates: start: 20010109
  18. ACETAMINOPHEN AND HYDROCODONE BITARTRATE [Concomitant]
     Route: 065
     Dates: start: 20040404
  19. ACCUPRIL [Concomitant]
     Indication: HYPERTENSION
     Route: 065
     Dates: start: 20000208

REACTIONS (25)
  - ANXIETY [None]
  - BLOOD CHOLESTEROL INCREASED [None]
  - BLOOD PRESSURE DECREASED [None]
  - CARDIAC DISORDER [None]
  - CARDIAC FAILURE [None]
  - CEREBROVASCULAR ACCIDENT [None]
  - CORONARY ARTERY DISEASE [None]
  - DIABETES MELLITUS [None]
  - DIABETIC NEUROPATHY [None]
  - DYSLIPIDAEMIA [None]
  - DYSPEPSIA [None]
  - DYSPNOEA [None]
  - GASTROOESOPHAGEAL REFLUX DISEASE [None]
  - INSOMNIA [None]
  - LOSS OF CONSCIOUSNESS [None]
  - MYOCARDIAL INFARCTION [None]
  - NERVOUSNESS [None]
  - OEDEMA PERIPHERAL [None]
  - POST PROCEDURAL COMPLICATION [None]
  - RENAL FAILURE [None]
  - RENAL FAILURE ACUTE [None]
  - RENAL FAILURE CHRONIC [None]
  - VERTIGO [None]
  - WOUND DEHISCENCE [None]
  - WOUND INFECTION [None]
